FAERS Safety Report 5778795-4 (Version None)
Quarter: 2008Q2

REPORT INFORMATION
  Report Type: 
  Country: None (occurrence: None)
  Receive Date: 20080619
  Receipt Date: 20080609
  Transmission Date: 20081010
  Serious: Yes (Other)
  Sender: FDA-Public Use
  Company Number: PHHY2008NL10367

PATIENT

DRUGS (1)
  1. LAMISIL [Suspect]
     Dosage: 250 MG, QD

REACTIONS (2)
  - ARRHYTHMIA [None]
  - PALPITATIONS [None]
